FAERS Safety Report 9447874 (Version 1)
Quarter: 2013Q3

REPORT INFORMATION
  Report Type: Spontaneous
  Country: US (occurrence: US)
  Receive Date: 20130808
  Receipt Date: 20130808
  Transmission Date: 20140515
  Serious: Yes (Other)
  Sender: FDA-Public Use
  Company Number: US-COVIDIEN/TYCO HEALTHCARE/MALLINCKRODT-T201303963

PATIENT
  Age: 40 Year
  Sex: Male

DRUGS (1)
  1. GABLOFEN [Suspect]
     Indication: MUSCLE SPASTICITY
     Dosage: 80 MCG PER DAY
     Route: 037
     Dates: end: 20130726

REACTIONS (3)
  - Pocket erosion [Unknown]
  - Wound infection [Unknown]
  - Implant site erythema [Unknown]
